FAERS Safety Report 7961823-5 (Version None)
Quarter: 2011Q4

REPORT INFORMATION
  Report Type: 
  Country: None (occurrence: None)
  Receive Date: 20111207
  Receipt Date: 20111207
  Transmission Date: 20120403
  Serious: Yes (Hospitalization)
  Sender: FDA-Public Use
  Company Number: None

PATIENT
  Age: 33 Year
  Sex: Female
  Weight: 78 kg

DRUGS (8)
  1. ENOXAPARIN [Concomitant]
  2. TENOFOVIR [Concomitant]
  3. COLACE [Concomitant]
  4. BRENTUXIMAB VEDOTIN [Suspect]
     Indication: HODGKIN'S DISEASE
     Dosage: 1.8 MG/KG -150 MG-
     Route: 042
     Dates: start: 20111019, end: 20111019
  5. ENTECAVIR [Concomitant]
  6. MULTI-VITAMIN [Concomitant]
  7. SOY MAG [Concomitant]
  8. AMOXICILLIN [Concomitant]
     Route: 048

REACTIONS (5)
  - CONSTIPATION [None]
  - ABDOMINAL DISTENSION [None]
  - DIARRHOEA [None]
  - ACUTE PRERENAL FAILURE [None]
  - VOMITING [None]
